FAERS Safety Report 5716433-7 (Version None)
Quarter: 2008Q2

REPORT INFORMATION
  Report Type: 
  Country: None (occurrence: None)
  Receive Date: 20080415
  Receipt Date: 20070430
  Transmission Date: 20081010
  Serious: Yes (Hospitalization)
  Sender: FDA-Public Use
  Company Number: 2005-01879

PATIENT
  Age: 49 Year
  Sex: Male

DRUGS (4)
  1. FERRLECIT [Suspect]
     Indication: IRON DEFICIENCY ANAEMIA
     Dosage: 500 MG/250ML NS @150ML/HR, INTRAVENOUS ; 125MG/250ML NS X SEVERAL DOSE, INTRAVENOUS
     Route: 042
     Dates: start: 20040813, end: 20040927
  2. FERRLECIT [Suspect]
     Indication: IRON DEFICIENCY ANAEMIA
     Dosage: 500 MG/250ML NS @150ML/HR, INTRAVENOUS ; 125MG/250ML NS X SEVERAL DOSE, INTRAVENOUS
     Route: 042
     Dates: start: 20050526, end: 20050526
  3. BENADRYL ^WARNER LAMBERT^ /USA/ [Concomitant]
  4. ACETAMINOPHEN [Concomitant]

REACTIONS (8)
  - ABDOMINAL PAIN [None]
  - BRADYCARDIA [None]
  - CYANOSIS [None]
  - DRUG TOXICITY [None]
  - HYPOTENSION [None]
  - LOSS OF CONSCIOUSNESS [None]
  - NAUSEA [None]
  - URTICARIA [None]
